FAERS Safety Report 14284245 (Version 1)
Quarter: 2017Q4

REPORT INFORMATION
  Report Type: Spontaneous
  Country: US (occurrence: US)
  Receive Date: 20171214
  Receipt Date: 20171214
  Transmission Date: 20180321
  Serious: Yes (Other)
  Sender: FDA-Public Use
  Company Number: None

PATIENT
  Age: 12 Year
  Sex: Male
  Weight: 42.75 kg

DRUGS (6)
  1. SUPPLEMENTS [Concomitant]
     Active Substance: UNSPECIFIED INGREDIENT
  2. BETHAMETHASONE DIAPROPIONATE .05% [Suspect]
     Active Substance: BETAMETHASONE DIPROPIONATE
     Indication: ECZEMA
     Route: 061
     Dates: start: 20140220, end: 20140911
  3. DESONIDE 0.5% [Suspect]
     Active Substance: DESONIDE
     Indication: ECZEMA
     Route: 061
     Dates: start: 20051201, end: 20140912
  4. PROBIOTIC [Concomitant]
     Active Substance: PROBIOTICS NOS
  5. INHALER [Concomitant]
     Active Substance: UNSPECIFIED INGREDIENT
  6. EPIPEN [Concomitant]
     Active Substance: EPINEPHRINE

REACTIONS (25)
  - Dry skin [None]
  - Anxiety [None]
  - Muscle atrophy [None]
  - Hyperacusis [None]
  - Pruritus [None]
  - Post-traumatic stress disorder [None]
  - Eye discharge [None]
  - Neuralgia [None]
  - Hypothalamic pituitary adrenal axis suppression [None]
  - Pain [None]
  - Social problem [None]
  - Eczema [None]
  - Steroid withdrawal syndrome [None]
  - Tinnitus [None]
  - Skin exfoliation [None]
  - Skin odour abnormal [None]
  - Secretion discharge [None]
  - Loss of personal independence in daily activities [None]
  - Educational problem [None]
  - Skin fissures [None]
  - Asthma [None]
  - Skin papilloma [None]
  - Ear disorder [None]
  - Dandruff [None]
  - Temperature intolerance [None]

NARRATIVE: CASE EVENT DATE: 20140912
